FAERS Safety Report 7280896-9 (Version None)
Quarter: 2011Q1

REPORT INFORMATION
  Report Type: 
  Country: None (occurrence: None)
  Receive Date: 20110208
  Receipt Date: 20110127
  Transmission Date: 20110831
  Serious: Yes (Hospitalization)
  Sender: FDA-Public Use
  Company Number: US-BAYER-2011-009794

PATIENT
  Sex: Male

DRUGS (4)
  1. MACROBID [Concomitant]
  2. CIPRO [Suspect]
     Dosage: IN HOSPITAL
     Route: 042
  3. UNCODEABLE ^UNCLASSIFIABLE^ [Concomitant]
  4. CIPRO [Suspect]
     Dosage: 500 MG, BID
     Route: 048
     Dates: end: 20110113

REACTIONS (3)
  - CYSTITIS [None]
  - ARTHRALGIA [None]
  - JOINT SWELLING [None]
